FAERS Safety Report 23229916 (Version 8)
Quarter: 2024Q2

REPORT INFORMATION
  Report Type: Spontaneous
  Country: US (occurrence: US)
  Receive Date: 20231127
  Receipt Date: 20240506
  Transmission Date: 20240716
  Serious: Yes (Hospitalization, Other)
  Sender: FDA-Public Use
  Company Number: US-BRISTOL-MYERS SQUIBB COMPANY-2023-167783

PATIENT
  Age: 78 Year
  Sex: Male

DRUGS (4)
  1. LENALIDOMIDE [Suspect]
     Active Substance: LENALIDOMIDE
     Indication: Plasma cell myeloma
     Dosage: TAKE 1 CAPSULE BY MOUTH DAILY. TAKE WHOLE WITH WATER. DO NOT BREAK, CHEW OR OPEN/TAKE 1 CAPSULE BY M
     Route: 048
     Dates: start: 20230525
  2. LENALIDOMIDE [Suspect]
     Active Substance: LENALIDOMIDE
     Dosage: TAKE 1 CAPSULE BY MOUTH DAILY. TAKE WHOLE WITH WATER. DO NOT BREAK, CHEW OR OPEN/TAKE 1 CAPSULE BY M
     Route: 048
     Dates: start: 20230525
  3. LENALIDOMIDE [Suspect]
     Active Substance: LENALIDOMIDE
     Route: 048
  4. LENALIDOMIDE [Suspect]
     Active Substance: LENALIDOMIDE
     Dosage: TAKE 1 CAPSULE BY MOUTH EVERY DAY FOR 21 DAYS OF A 28-?DAY CYCLE.
     Route: 048

REACTIONS (6)
  - Haemoglobin decreased [Recovered/Resolved]
  - Red blood cell count decreased [Not Recovered/Not Resolved]
  - Full blood count decreased [Recovered/Resolved]
  - Off label use [Unknown]
  - Red blood cell abnormality [Recovered/Resolved]
  - Cardiac disorder [Not Recovered/Not Resolved]
